FAERS Safety Report 9525201 (Version 1)
Quarter: 2013Q1

REPORT INFORMATION
  Report Type: Spontaneous
  Country: US (occurrence: None)
  Receive Date: 20130314
  Receipt Date: 20130314
  Transmission Date: 20140127
  Serious: No
  Sender: FDA-Public Use
  Company Number: 1212USA006499

PATIENT
  Sex: Female

DRUGS (11)
  1. VICTRELIS (BOCEPREVIR) CAPSULE, 200MG [Suspect]
  2. XANAX (ALPRAZOLAM) [Concomitant]
  3. BENADRYL (DIPHENHYDRAMINE HYDROCHLORIDE) [Concomitant]
  4. PEGASYS [Suspect]
     Dosage: 180MICROGRAM/0.8ML PFS
  5. WELLBUTRIN (BUPROPION HYDROCHLORIDE) [Concomitant]
  6. LEVOTHYROXINE SODIUM (LEVOTHYROXINE SODIUM) [Concomitant]
  7. ADVIL (IBUPROFEN) [Concomitant]
  8. VITAMINS (UNSPECIFIED) (VITAMINS (UNSPECIFIED)) CAPSULE [Concomitant]
  9. FOLIC ACID (FOLIC ACID) [Concomitant]
  10. TYLENOL (ACETAMINOPHEN) [Concomitant]
  11. RIBAVIRIN [Suspect]

REACTIONS (1)
  - White blood cell count decreased [None]
